FAERS Safety Report 5628745-6 (Version None)
Quarter: 2008Q1

REPORT INFORMATION
  Report Type: 
  Country: None (occurrence: None)
  Receive Date: 20080215
  Receipt Date: 20080204
  Transmission Date: 20080703
  Serious: Yes (Death, Other)
  Sender: FDA-Public Use
  Company Number: CZ-PFIZER INC-2008012431

PATIENT
  Age: 72 Year
  Sex: Female

DRUGS (4)
  1. PHENYTOIN [Interacting]
     Indication: STATUS EPILEPTICUS
     Route: 042
  2. CARBAMAZEPINE [Interacting]
     Dosage: DAILY DOSE:400MG
     Route: 048
  3. CARBAMAZEPINE [Interacting]
     Dosage: TEXT:TDD:800 MG
     Route: 048
  4. EUTHYROX [Suspect]
     Route: 048

REACTIONS (3)
  - DRUG INTERACTION [None]
  - HYPOTHYROIDISM [None]
  - UROSEPSIS [None]
